FAERS Safety Report 14869297 (Version 2)
Quarter: 2019Q2

REPORT INFORMATION
  Report Type: Spontaneous
  Country: US (occurrence: US)
  Receive Date: 20180509
  Receipt Date: 20190513
  Transmission Date: 20190711
  Serious: No
  Sender: FDA-Public Use
  Company Number: US-TORRENT-00006082

PATIENT
  Sex: Female
  Weight: 72 kg

DRUGS (3)
  1. ASPIRIN. [Concomitant]
     Active Substance: ASPIRIN
     Indication: PRODUCT USED FOR UNKNOWN INDICATION
  2. ROSUVASTATIN. [Concomitant]
     Active Substance: ROSUVASTATIN
     Indication: BLOOD CHOLESTEROL INCREASED
     Dosage: UNKNOWN
  3. CITALOPRAM [Suspect]
     Active Substance: CITALOPRAM HYDROBROMIDE
     Indication: DEPRESSION
     Dosage: UNKNOWN

REACTIONS (8)
  - Anxiety [Unknown]
  - Treatment noncompliance [Unknown]
  - Withdrawal syndrome [Unknown]
  - Depression [Unknown]
  - Nervousness [Unknown]
  - Confusional state [Unknown]
  - Therapy cessation [Unknown]
  - Memory impairment [Unknown]
